FAERS Safety Report 11990126 (Version 1)
Quarter: 2016Q1

REPORT INFORMATION
  Report Type: Spontaneous
  Country: US (occurrence: US)
  Receive Date: 20160202
  Receipt Date: 20160202
  Transmission Date: 20160526
  Serious: No
  Sender: FDA-Public Use
  Company Number: US-ROCHE-1543528

PATIENT
  Sex: Male

DRUGS (6)
  1. NUTROPIN [Suspect]
     Active Substance: SOMATROPIN
     Indication: HYPOPITUITARISM
  2. LEVOTHYROXINE. [Concomitant]
     Active Substance: LEVOTHYROXINE
  3. CORTEF [Concomitant]
     Active Substance: HYDROCORTISONE
  4. TESTOSTERONE. [Concomitant]
     Active Substance: TESTOSTERONE
  5. NUTROPIN [Suspect]
     Active Substance: SOMATROPIN
     Indication: HYPOPITUITARISM
     Route: 058
     Dates: start: 201309
  6. KEPPRA [Concomitant]
     Active Substance: LEVETIRACETAM

REACTIONS (1)
  - Gynaecomastia [Unknown]
